FAERS Safety Report 8590025-7 (Version None)
Quarter: 2012Q3

REPORT INFORMATION
  Report Type: 
  Country: None (occurrence: None)
  Receive Date: 20120813
  Receipt Date: 20120802
  Transmission Date: 20120928
  Serious: Yes (Hospitalization)
  Sender: FDA-Public Use
  Company Number: JP-CELGENEUS-087-50794-12080787

PATIENT
  Sex: Female
  Weight: 39 kg

DRUGS (19)
  1. VIDAZA [Suspect]
     Indication: MYELODYSPLASTIC SYNDROME
     Dosage: 75 MICROGRAM
     Route: 041
     Dates: start: 20110617, end: 20110623
  2. INDAST [Concomitant]
     Route: 065
     Dates: end: 20110622
  3. SULPERAZON [Concomitant]
     Route: 065
     Dates: start: 20110623, end: 20110623
  4. OMEPRAZOLE [Concomitant]
     Route: 065
  5. PREDNISOLONE [Concomitant]
     Route: 065
  6. LOBU [Concomitant]
     Route: 065
  7. BIO-THREE [Concomitant]
     Route: 065
  8. DEPAS [Concomitant]
     Route: 065
  9. ZOLPIDEM [Concomitant]
     Route: 065
  10. VFEND [Concomitant]
     Route: 065
  11. TPN ELECTROLYTES IN PLASTIC CONTAINER [Concomitant]
     Route: 065
  12. AUZEI [Concomitant]
     Route: 065
  13. RIKAVARIN [Concomitant]
     Route: 065
  14. NORVASC [Concomitant]
     Route: 065
  15. ALMARL [Concomitant]
     Route: 065
  16. FIRSTCIN [Concomitant]
     Route: 065
     Dates: start: 20110624, end: 20110627
  17. MEROPENEM [Concomitant]
     Route: 065
     Dates: start: 20110628, end: 20110703
  18. RIMEFA 3B [Concomitant]
     Route: 065
  19. MIRTAZAPINE [Concomitant]
     Route: 065

REACTIONS (1)
  - ACUTE MYOCARDIAL INFARCTION [None]
